FAERS Safety Report 5406209-2 (Version None)
Quarter: 2007Q3

REPORT INFORMATION
  Report Type: 
  Country: None (occurrence: None)
  Receive Date: 20070802
  Receipt Date: 20070802
  Transmission Date: 20080115
  Serious: Yes (Hospitalization)
  Sender: FDA-Public Use
  Company Number: None

PATIENT
  Age: 81 Year
  Sex: Female

DRUGS (6)
  1. RITUXAN [Suspect]
     Indication: ANAEMIA HAEMOLYTIC AUTOIMMUNE
     Dosage: 700 MG ONCE IV DRIP
     Route: 041
     Dates: start: 20060512, end: 20060512
  2. INSULIN [Concomitant]
  3. MS CONTIN [Concomitant]
  4. PREDNISONE TAB [Concomitant]
  5. SYNTHROID [Concomitant]
  6. LEXAPRO [Concomitant]

REACTIONS (2)
  - DISEASE RECURRENCE [None]
  - MYALGIA [None]
